FAERS Safety Report 6804309-3 (Version None)
Quarter: 2010Q2

REPORT INFORMATION
  Report Type: 
  Country: None (occurrence: None)
  Receive Date: 20100628
  Receipt Date: 20070223
  Transmission Date: 20101027
  Serious: Yes (Hospitalization)
  Sender: FDA-Public Use
  Company Number: US-PFIZER INC-2007015250

PATIENT
  Sex: Female

DRUGS (3)
  1. GEODON [Suspect]
  2. MIRTAZAPINE [Concomitant]
  3. SEROQUEL [Concomitant]
     Indication: BIPOLAR DISORDER

REACTIONS (1)
  - NEUROLEPTIC MALIGNANT SYNDROME [None]
